FAERS Safety Report 5237436-5 (Version None)
Quarter: 2007Q1

REPORT INFORMATION
  Report Type: 
  Country: None (occurrence: None)
  Receive Date: 20070213
  Receipt Date: 20070201
  Transmission Date: 20070707
  Serious: Yes (Other)
  Sender: FDA-Public Use
  Company Number: US-PFIZER INC-2007009908

PATIENT
  Sex: Female
  Weight: 154.2 kg

DRUGS (5)
  1. LYRICA [Suspect]
     Indication: ARTHRALGIA
  2. LYRICA [Suspect]
     Indication: PAIN IN EXTREMITY
  3. LASIX [Concomitant]
  4. METOPROLOL TARTRATE [Concomitant]
  5. HYDROCHLOROTHIAZIDE [Concomitant]

REACTIONS (1)
  - WEIGHT DECREASED [None]
